FAERS Safety Report 6195135-X (Version None)
Quarter: 2009Q2

REPORT INFORMATION
  Report Type: 
  Country: None (occurrence: None)
  Receive Date: 20090519
  Receipt Date: 20090513
  Transmission Date: 20091009
  Serious: Yes (Other)
  Sender: FDA-Public Use
  Company Number: JP-JNJFOC-20090503575

PATIENT
  Sex: Female

DRUGS (5)
  1. TOPINA [Suspect]
     Route: 048
  2. TOPINA [Suspect]
     Indication: EPILEPSY
     Route: 048
  3. HYSERENIN [Concomitant]
     Route: 048
  4. HYSERENIN [Concomitant]
     Indication: EPILEPSY
     Route: 048
  5. LAMISIL [Concomitant]
     Route: 061

REACTIONS (4)
  - DECREASED APPETITE [None]
  - EXTRAPYRAMIDAL DISORDER [None]
  - GAIT DISTURBANCE [None]
  - INSOMNIA [None]
